FAERS Safety Report 13303836 (Version 1)
Quarter: 2017Q1

REPORT INFORMATION
  Report Type: Spontaneous
  Country: ES (occurrence: ES)
  Receive Date: 20170307
  Receipt Date: 20170307
  Transmission Date: 20170428
  Serious: Yes (Hospitalization, Other)
  Sender: FDA-Public Use
  Company Number: ES-BAXTER-2017BAX008940

PATIENT
  Age: 18 Year
  Sex: Male

DRUGS (6)
  1. METOCLOPRAMIDE. [Concomitant]
     Active Substance: METOCLOPRAMIDE
     Indication: VOMITING
     Dosage: 10MG/8H
     Route: 042
     Dates: start: 20161212
  2. TIMOGLOBULINA//ANTITHYMOCYTE IMMUNOGLOBULIN (RABBIT) [Suspect]
     Active Substance: LAPINE T-LYMPHOCYTE IMMUNE GLOBULIN
     Indication: BONE MARROW CONDITIONING REGIMEN
     Dosage: 200 MG, POWDER FOR PERFUSION SOLUTION, 1 VIAL
     Route: 042
     Dates: start: 20161210, end: 20161213
  3. CICLOSPORINA [Suspect]
     Active Substance: CYCLOSPORINE
     Indication: PROPHYLAXIS AGAINST GRAFT VERSUS HOST DISEASE
     Dosage: 125 MG/12H
     Route: 042
     Dates: start: 20161205, end: 20161214
  4. GENOXAL [Suspect]
     Active Substance: CYCLOPHOSPHAMIDE
     Indication: BONE MARROW CONDITIONING REGIMEN
     Dosage: 4 GR AT 12H, 1 VIAL
     Route: 042
     Dates: start: 20161210, end: 20161213
  5. CUBICIN [Concomitant]
     Active Substance: DAPTOMYCIN
     Indication: PYREXIA
     Dosage: 500 MG, CONCENTRATE POWDER FOR PERFUSION SOLUTION
     Route: 042
     Dates: start: 20161207
  6. PARACETAMOL [Concomitant]
     Active Substance: ACETAMINOPHEN
     Indication: PAIN
     Dosage: 1GR/8H
     Route: 042
     Dates: start: 20161124

REACTIONS (9)
  - Left ventricular dysfunction [Recovering/Resolving]
  - Hypertension [Unknown]
  - Cerebrovascular accident [Unknown]
  - Mitral valve incompetence [Unknown]
  - Pericardial effusion [Unknown]
  - Respiratory tract infection [Unknown]
  - Muscular weakness [Unknown]
  - Acute kidney injury [Unknown]
  - Right atrial dilatation [Unknown]

NARRATIVE: CASE EVENT DATE: 20161221
